FAERS Safety Report 7500161-1 (Version None)
Quarter: 2011Q2

REPORT INFORMATION
  Report Type: 
  Country: None (occurrence: None)
  Receive Date: 20110524
  Receipt Date: 20110518
  Transmission Date: 20111010
  Serious: Yes (Other)
  Sender: FDA-Public Use
  Company Number: US-GENZYME-THYM-1002475

PATIENT

DRUGS (2)
  1. TACROLIMUS [Concomitant]
     Indication: TRANSPLANT REJECTION
     Route: 065
  2. THYMOGLOBULIN [Suspect]
     Indication: TRANSPLANT REJECTION
     Route: 042

REACTIONS (3)
  - HISTOPLASMOSIS DISSEMINATED [None]
  - GRAFT LOSS [None]
  - IMMUNE RECONSTITUTION SYNDROME [None]
